FAERS Safety Report 16807146 (Version 3)
Quarter: 2019Q4

REPORT INFORMATION
  Report Type: Spontaneous
  Country: ZA (occurrence: ZA)
  Receive Date: 20190913
  Receipt Date: 20191002
  Transmission Date: 20200122
  Serious: Yes (Death, Hospitalization, Other)
  Sender: FDA-Public Use
  Company Number: PHHY2019ZA210495

PATIENT
  Age: 45 Year
  Weight: 110 kg

DRUGS (6)
  1. COSENTYX [Suspect]
     Active Substance: SECUKINUMAB
     Indication: ANKYLOSING SPONDYLITIS
     Dosage: UNK(5 LOADING DOSES)
     Route: 058
     Dates: start: 20190718, end: 20190815
  2. FOSAVANCE [Suspect]
     Active Substance: ALENDRONATE SODIUM\CHOLECALCIFEROL
     Indication: OSTEOPOROSIS
     Dosage: 1 DF, UNK(2 YEARS)
     Route: 048
  3. XEFO [Suspect]
     Active Substance: LORNOXICAM
     Indication: ANKYLOSING SPONDYLITIS
     Dosage: 8 MG, UNK
     Route: 048
  4. ZANIDIP [Suspect]
     Active Substance: LERCANIDIPINE HYDROCHLORIDE
     Indication: HYPERTENSION
     Dosage: 10 MG, UNK
     Route: 048
  5. PEPLOC [PANTOPRAZOLE SODIUM SESQUIHYDRATE] [Suspect]
     Active Substance: PANTOPRAZOLE SODIUM
     Indication: ABDOMINAL DISCOMFORT
     Dosage: 20 MG, UNK
     Route: 048
  6. PERINDOPRIL [Suspect]
     Active Substance: PERINDOPRIL
     Indication: HYPERTENSION
     Dosage: 1 DF, UNK
     Route: 048

REACTIONS (35)
  - Septic shock [Unknown]
  - Pneumonia [Unknown]
  - Decreased appetite [Fatal]
  - Beta haemolytic streptococcal infection [Unknown]
  - Cardiomegaly [Unknown]
  - Blood chloride decreased [Unknown]
  - Sepsis [Fatal]
  - Haemophilus infection [Unknown]
  - Bilirubin conjugated increased [Unknown]
  - Gamma-glutamyltransferase increased [Unknown]
  - Protein total decreased [Unknown]
  - Pyrexia [Fatal]
  - Candida infection [Unknown]
  - C-reactive protein increased [Unknown]
  - Blood prolactin increased [Unknown]
  - Blood urea increased [Unknown]
  - Blood alkaline phosphatase increased [Unknown]
  - Multiple organ dysfunction syndrome [Fatal]
  - Jaundice [Unknown]
  - Streptococcal infection [Unknown]
  - Blood bilirubin increased [Unknown]
  - Alanine aminotransferase increased [Unknown]
  - Mean cell haemoglobin increased [Unknown]
  - Prothrombin time prolonged [Unknown]
  - Anion gap increased [Unknown]
  - Blood albumin decreased [Unknown]
  - Fatigue [Fatal]
  - Blood creatinine increased [Unknown]
  - Glomerular filtration rate decreased [Unknown]
  - Aspartate aminotransferase increased [Unknown]
  - Aortic disorder [Unknown]
  - Red blood cell count decreased [Unknown]
  - Haematocrit decreased [Unknown]
  - Blood sodium decreased [Unknown]
  - Blood bilirubin unconjugated increased [Unknown]

NARRATIVE: CASE EVENT DATE: 2019
